FAERS Safety Report 7374884-1 (Version None)
Quarter: 2011Q1

REPORT INFORMATION
  Report Type: 
  Country: None (occurrence: None)
  Receive Date: 20110325
  Receipt Date: 20110302
  Transmission Date: 20110831
  Serious: No
  Sender: FDA-Public Use
  Company Number: US-B.I. PHARMACEUTICALS,INC./RIDGEFIELD-2011-BP-06388BP

PATIENT
  Sex: Male

DRUGS (4)
  1. ABILIFY [Concomitant]
     Indication: DEPRESSION
  2. SPIRIVA [Suspect]
     Indication: CHRONIC OBSTRUCTIVE PULMONARY DISEASE
     Dosage: 18 MCG
     Route: 055
     Dates: start: 20110223
  3. ADVAIR DISKUS 100/50 [Concomitant]
     Indication: CHRONIC OBSTRUCTIVE PULMONARY DISEASE
  4. CLONAZEPAM [Concomitant]
     Indication: DEPRESSION

REACTIONS (1)
  - IRRITABILITY [None]
